FAERS Safety Report 9802903 (Version 2)
Quarter: 2014Q1

REPORT INFORMATION
  Report Type: Spontaneous
  Country: GB (occurrence: None)
  Receive Date: 20140102
  Receipt Date: 20140123
  Transmission Date: 20141002
  Serious: Yes (Other)
  Sender: FDA-Public Use
  Company Number: AUR-APL-2013-10927

PATIENT
  Age: 78 Year
  Sex: Female
  Weight: 75 kg

DRUGS (16)
  1. ENOXAPARIN (ENOXAPARIN) [Concomitant]
  2. FUROSEMIDE (FUROSEMIDE) [Concomitant]
  3. GABAPENTIN (GABAPENTIN) [Concomitant]
  4. PANTOPRAZOLE (PANTOPRAZOLE) [Concomitant]
  5. PARACETAMOL (PARACETAMOL) [Concomitant]
  6. LANSOPRAZOLE (LANSOPRAZOLE) [Concomitant]
  7. NORADRENALINE (NOREPINEPHRINE) 1 MG/ML (NORADRENALINE TARTRATE) [Concomitant]
  8. PERINDOPRIL (PERINDOPRIL) [Concomitant]
  9. PROPOFOL (PROPOFOL) [Concomitant]
  10. REMIFENTALIL (REMIFENTANIL) [Concomitant]
  11. RIVAROXABAN (RIVAROXABAN) [Concomitant]
  12. BISOPROLOL (BISOPROLOL) [Suspect]
     Indication: PRODUCT USED FOR UNKNOWN INDICATION
  13. ERYTHROMYCIN (ERYTHROMYCIN) [Suspect]
     Indication: GASTROINTESTINAL MOTILITY DISORDER
     Dates: start: 20131216, end: 20131220
  14. OMEPRAZOLE (OMEPRAZOLE) [Suspect]
     Indication: PRODUCT USED FOR UNKNOWN INDICATION
  15. DEXDOR [Suspect]
     Indication: SEDATION
     Dates: start: 20131218
  16. C-AMOXICLAV (AUGMENTIN/00756801/) [Concomitant]

REACTIONS (6)
  - Fall [None]
  - Rib fracture [None]
  - Alanine aminotransferase increased [None]
  - Aspartate aminotransferase increased [None]
  - Blood bilirubin increased [None]
  - Drug interaction [None]
